FAERS Safety Report 4862169-4 (Version None)
Quarter: 2005Q4

REPORT INFORMATION
  Report Type: 
  Country: None (occurrence: None)
  Receive Date: 20051221
  Receipt Date: 20051123
  Transmission Date: 20060501
  Serious: Yes (Hospitalization, Disabling)
  Sender: FDA-Public Use
  Company Number: 2005CG01955

PATIENT
  Age: 15560 Day
  Sex: Male
  Weight: 62 kg

DRUGS (8)
  1. FOSCAVIR [Suspect]
     Indication: BLOOD HIV RNA INCREASED
     Route: 042
     Dates: start: 20051109, end: 20051129
  2. FOSCAVIR [Suspect]
     Indication: CD4 LYMPHOCYTES DECREASED
     Route: 042
     Dates: start: 20051109, end: 20051129
  3. AZADOSE [Concomitant]
     Indication: ANTIBIOTIC PROPHYLAXIS
     Dates: start: 20030403
  4. BACTRIM [Concomitant]
     Indication: ANTIBIOTIC PROPHYLAXIS
     Dates: start: 20010615
  5. BACTRIM [Concomitant]
     Indication: ANTIBIOTIC PROPHYLAXIS
     Dates: start: 20010615
  6. TRIZIVIR [Concomitant]
     Indication: HIV INFECTION
     Dates: start: 20030403
  7. NORVIR [Concomitant]
     Indication: HIV INFECTION
     Dates: start: 20020615
  8. TELZIR [Concomitant]
     Indication: HIV INFECTION
     Dates: start: 20050401

REACTIONS (5)
  - CATHETER SITE INFLAMMATION [None]
  - FLUID RETENTION [None]
  - HEMIANOPIA HOMONYMOUS [None]
  - PHOSPHENES [None]
  - VITREOUS FLOATERS [None]
